FAERS Safety Report 11864116 (Version 1)
Quarter: 2015Q4

REPORT INFORMATION
  Report Type: Report from Study
  Country: US (occurrence: US)
  Receive Date: 20151223
  Receipt Date: 20151223
  Transmission Date: 20160305
  Serious: Yes (Hospitalization)
  Sender: FDA-Public Use
  Company Number: US-EISAI MEDICAL RESEARCH-EC-2015-011135

PATIENT
  Sex: Male
  Weight: 83.5 kg

DRUGS (13)
  1. COLACE [Concomitant]
     Active Substance: DOCUSATE SODIUM
  2. VITAMIN C [Concomitant]
     Active Substance: ASCORBIC ACID
  3. VITAMIN E [Concomitant]
     Active Substance: .ALPHA.-TOCOPHEROL
  4. PREVIDENT [Concomitant]
     Active Substance: SODIUM FLUORIDE
  5. LENVIMA [Suspect]
     Active Substance: LENVATINIB
     Indication: THYROID CANCER
     Route: 048
     Dates: start: 20151002, end: 20151016
  6. PRILOSEC [Concomitant]
     Active Substance: OMEPRAZOLE MAGNESIUM
  7. CALTRATE [Concomitant]
     Active Substance: CALCIUM CARBONATE
  8. NAPROXEN. [Concomitant]
     Active Substance: NAPROXEN
  9. ZOLOFT [Concomitant]
     Active Substance: SERTRALINE HYDROCHLORIDE
  10. AMLODIPINE [Concomitant]
     Active Substance: AMLODIPINE BESYLATE
  11. LENVIMA [Suspect]
     Active Substance: LENVATINIB
     Route: 048
     Dates: start: 2015, end: 201512
  12. LEVOTHYROXINE. [Concomitant]
     Active Substance: LEVOTHYROXINE
  13. MIRTAZAPINE. [Concomitant]
     Active Substance: MIRTAZAPINE

REACTIONS (7)
  - Pain [Recovering/Resolving]
  - Glossodynia [Recovering/Resolving]
  - Arthralgia [Recovering/Resolving]
  - Back pain [Unknown]
  - Memory impairment [Unknown]
  - Decreased appetite [Recovering/Resolving]
  - Lip pain [Recovering/Resolving]

NARRATIVE: CASE EVENT DATE: 2015
